FAERS Safety Report 11104612 (Version 2)
Quarter: 2015Q2

REPORT INFORMATION
  Report Type: Report from Study
  Country: FR (occurrence: FR)
  Receive Date: 20150511
  Receipt Date: 20150528
  Transmission Date: 20150821
  Serious: Yes (Hospitalization)
  Sender: FDA-Public Use
  Company Number: FR-009507513-1505FRA000896

PATIENT
  Age: 53 Year
  Sex: Female
  Weight: 89 kg

DRUGS (3)
  1. CLOPIXOL TABLETS [Concomitant]
     Dosage: 10 MG, QD
     Route: 048
     Dates: start: 20020615
  2. RALTEGRAVIR POTASSIUM [Suspect]
     Active Substance: RALTEGRAVIR POTASSIUM
     Indication: HIV INFECTION
     Dosage: 400 MG, BID
     Route: 048
     Dates: start: 20150313, end: 20150423
  3. ETRAVIRINE [Suspect]
     Active Substance: ETRAVIRINE
     Indication: HIV INFECTION
     Dosage: 200 MG, BID
     Dates: start: 20150313, end: 20150423

REACTIONS (2)
  - Agitation [Not Recovered/Not Resolved]
  - Delirium [Not Recovered/Not Resolved]

NARRATIVE: CASE EVENT DATE: 20150423
